FAERS Safety Report 8016623-7 (Version None)
Quarter: 2011Q4

REPORT INFORMATION
  Report Type: 
  Country: None (occurrence: None)
  Receive Date: 20111231
  Receipt Date: 20111223
  Transmission Date: 20120403
  Serious: Yes (Other)
  Sender: FDA-Public Use
  Company Number: PHHY2011DK111699

PATIENT
  Sex: Male

DRUGS (2)
  1. FLUCONAZOLE [Suspect]
  2. PRADAXA [Interacting]
     Indication: ATRIAL FIBRILLATION
     Dosage: 110 MG, BID
     Route: 048
     Dates: start: 20111122, end: 20111212

REACTIONS (3)
  - DRUG INTERACTION [None]
  - HAEMOGLOBIN DECREASED [None]
  - MELAENA [None]
